FAERS Safety Report 13691818 (Version 3)
Quarter: 2017Q3

REPORT INFORMATION
  Report Type: Spontaneous
  Country: US (occurrence: US)
  Receive Date: 20170626
  Receipt Date: 20170818
  Transmission Date: 20171127
  Serious: Yes (Hospitalization, Other)
  Sender: FDA-Public Use
  Company Number: US-TEVA-780178USA

PATIENT
  Sex: Female
  Weight: 136.2 kg

DRUGS (6)
  1. ADVAIR DISKUS [Concomitant]
     Active Substance: FLUTICASONE PROPIONATE\SALMETEROL XINAFOATE
  2. PREDNISONE. [Concomitant]
     Active Substance: PREDNISONE
  3. PROAIR HFA [Suspect]
     Active Substance: ALBUTEROL SULFATE
     Indication: ASTHMA
     Route: 065
  4. PROAIR HFA [Suspect]
     Active Substance: ALBUTEROL SULFATE
     Indication: PULMONARY EMBOLISM
  5. XARELTO [Concomitant]
     Active Substance: RIVAROXABAN
  6. HYDROCODONE BITARTRATE AND ACETAMINOPHEN [Concomitant]
     Active Substance: ACETAMINOPHEN\HYDROCODONE BITARTRATE

REACTIONS (4)
  - Dyspnoea [Unknown]
  - Cardiac disorder [Unknown]
  - Cardiomegaly [Unknown]
  - Lung disorder [Unknown]
